FAERS Safety Report 24990077 (Version 2)
Quarter: 2025Q1

REPORT INFORMATION
  Report Type: Spontaneous
  Country: US (occurrence: US)
  Receive Date: 20250220
  Receipt Date: 20250321
  Transmission Date: 20250409
  Serious: No
  Sender: BLUEPRINT MEDICINES
  Company Number: US-Blueprint Medicines Corporation-2025-AER-00320

PATIENT
  Age: 58 Year
  Sex: Female

DRUGS (1)
  1. AYVAKIT [Suspect]
     Active Substance: AVAPRITINIB
     Indication: Systemic mastocytosis
     Route: 048
     Dates: start: 20241228

REACTIONS (8)
  - Brain fog [Unknown]
  - Fatigue [Unknown]
  - Pruritus [Unknown]
  - Nausea [Unknown]
  - Flatulence [Unknown]
  - Vomiting [Unknown]
  - Diarrhoea [Unknown]
  - Adverse drug reaction [Unknown]
